FAERS Safety Report 5093560-1 (Version None)
Quarter: 2006Q3

REPORT INFORMATION
  Report Type: 
  Country: None (occurrence: None)
  Receive Date: 20060829
  Receipt Date: 20060814
  Transmission Date: 20061208
  Serious: Yes (Hospitalization)
  Sender: FDA-Public Use
  Company Number: US200608002932

PATIENT
  Age: 77 Year
  Sex: Female

DRUGS (2)
  1. FORTEO [Suspect]
     Indication: OSTEOPOROSIS
     Dates: start: 20060310
  2. FORTEO [Concomitant]

REACTIONS (4)
  - ANEURYSM [None]
  - ARTERIAL STENT INSERTION [None]
  - PERIPHERAL ARTERY ANEURYSM [None]
  - PHARMACEUTICAL PRODUCT COMPLAINT [None]
